FAERS Safety Report 25408401 (Version 2)
Quarter: 2025Q3

REPORT INFORMATION
  Report Type: Report from Study
  Country: US (occurrence: US)
  Receive Date: 20250606
  Receipt Date: 20250702
  Transmission Date: 20251020
  Serious: Yes (Hospitalization)
  Sender: TAKEDA
  Company Number: US-TAKEDA-2023TUS003003

PATIENT
  Age: 68 Year
  Sex: Female
  Weight: 57 kg

DRUGS (14)
  1. HUMAN IMMUNOGLOBULIN G [Suspect]
     Active Substance: HUMAN IMMUNOGLOBULIN G
     Indication: Immune system disorder
     Dosage: 5 GRAM, 1/WEEK
     Dates: start: 20230105
  2. HUMAN IMMUNOGLOBULIN G [Suspect]
     Active Substance: HUMAN IMMUNOGLOBULIN G
     Indication: Hypergammaglobulinaemia
     Dosage: 26 GRAM, MONTHLY
  3. HUMAN IMMUNOGLOBULIN G [Suspect]
     Active Substance: HUMAN IMMUNOGLOBULIN G
     Dosage: 6 GRAM, 1/WEEK
  4. DEXAMETHASONE [Suspect]
     Active Substance: DEXAMETHASONE
     Indication: Product used for unknown indication
  5. ACETAMINOPHEN [Concomitant]
     Active Substance: ACETAMINOPHEN
  6. PEPCID [Concomitant]
     Active Substance: FAMOTIDINE
  7. DILTIAZEM HYDROCHLORIDE [Concomitant]
     Active Substance: DILTIAZEM HYDROCHLORIDE
  8. ASCORBIC ACID [Concomitant]
     Active Substance: ASCORBIC ACID
  9. DIPHENHYDRAMINE HYDROCHLORIDE [Concomitant]
     Active Substance: DIPHENHYDRAMINE HYDROCHLORIDE
  10. Lmx [Concomitant]
  11. TRAZODONE HCL [Concomitant]
     Active Substance: TRAZODONE HYDROCHLORIDE
  12. PRILOSEC [Concomitant]
     Active Substance: OMEPRAZOLE MAGNESIUM
  13. EPINEPHRINE [Concomitant]
     Active Substance: EPINEPHRINE
  14. Tums chewies [Concomitant]

REACTIONS (24)
  - Fall [Unknown]
  - Tympanic membrane perforation [Unknown]
  - Viral infection [Unknown]
  - Inflammation [Unknown]
  - Respiratory syncytial virus infection [Not Recovered/Not Resolved]
  - Ear infection bacterial [Recovered/Resolved]
  - COVID-19 [Recovering/Resolving]
  - Application site laceration [Unknown]
  - Bacterial infection [Unknown]
  - Product quality issue [Unknown]
  - Viral upper respiratory tract infection [Unknown]
  - Respiratory tract infection [Unknown]
  - Drug hypersensitivity [Unknown]
  - Infusion site haemorrhage [Unknown]
  - Injection site swelling [Unknown]
  - Swelling [Recovering/Resolving]
  - Infusion site bruising [Unknown]
  - Infusion site reaction [Unknown]
  - Chest pain [Unknown]
  - Injection site pain [Unknown]
  - Infusion site pruritus [Unknown]
  - Erythema [Unknown]
  - Arthralgia [Unknown]
  - Nausea [Unknown]

NARRATIVE: CASE EVENT DATE: 20231113
